FAERS Safety Report 15809804 (Version 1)
Quarter: 2019Q1

REPORT INFORMATION
  Report Type: Spontaneous
  Country: US (occurrence: US)
  Receive Date: 20190111
  Receipt Date: 20190111
  Transmission Date: 20190417
  Serious: No
  Sender: FDA-Public Use
  Company Number: US-ROCHE-2088266

PATIENT
  Sex: Female

DRUGS (6)
  1. METHOTREXATE. [Suspect]
     Active Substance: METHOTREXATE
     Indication: RHEUMATOID ARTHRITIS
     Route: 048
     Dates: start: 201202, end: 201202
  2. METHOTREXATE. [Suspect]
     Active Substance: METHOTREXATE
     Route: 065
     Dates: start: 201108, end: 201202
  3. METHOTREXATE. [Suspect]
     Active Substance: METHOTREXATE
     Route: 065
     Dates: start: 201106, end: 201301
  4. ENBREL [Concomitant]
     Active Substance: ETANERCEPT
     Route: 065
     Dates: start: 201802, end: 201809
  5. ARAVA [Concomitant]
     Active Substance: LEFLUNOMIDE
     Route: 065
     Dates: start: 201706, end: 201706
  6. RITUXAN [Suspect]
     Active Substance: RITUXIMAB
     Indication: RHEUMATOID ARTHRITIS
     Route: 065
     Dates: start: 201706, end: 201706

REACTIONS (2)
  - Hypersensitivity [Unknown]
  - Nausea [Unknown]
